FAERS Safety Report 9414601 (Version 1)
Quarter: 2013Q3

REPORT INFORMATION
  Report Type: Spontaneous
  Country: US (occurrence: US)
  Receive Date: 20130723
  Receipt Date: 20130723
  Transmission Date: 20140515
  Serious: No
  Sender: FDA-Public Use
  Company Number: US-009507513-1307USA012071

PATIENT
  Sex: Male

DRUGS (1)
  1. CLARITIN-D-24 [Suspect]
     Indication: PARANASAL SINUS HYPERSECRETION
     Dosage: UNK, QD
     Route: 048
     Dates: start: 201307

REACTIONS (1)
  - Diarrhoea [Not Recovered/Not Resolved]
